FAERS Safety Report 7211667-7 (Version None)
Quarter: 2011Q1

REPORT INFORMATION
  Report Type: 
  Country: None (occurrence: None)
  Receive Date: 20110105
  Receipt Date: 20101228
  Transmission Date: 20110831
  Serious: Yes (Hospitalization)
  Sender: FDA-Public Use
  Company Number: US-US-EMD SERONO, INC.-234990J09USA

PATIENT
  Sex: Female
  Weight: 56 kg

DRUGS (4)
  1. FLEXERIL [Concomitant]
  2. KLONOPIN [Concomitant]
  3. REBIF [Suspect]
     Indication: MULTIPLE SCLEROSIS
     Route: 058
     Dates: start: 20091001, end: 20091227
  4. IBUPROFEN [Suspect]
     Dates: start: 20091001, end: 20091227

REACTIONS (9)
  - MENORRHAGIA [None]
  - TUBULOINTERSTITIAL NEPHRITIS [None]
  - ANAEMIA [None]
  - GLOMERULONEPHROPATHY [None]
  - PAIN [None]
  - INFLUENZA LIKE ILLNESS [None]
  - RENAL TUBULAR DISORDER [None]
  - FATIGUE [None]
  - INJECTION SITE ERYTHEMA [None]
